FAERS Safety Report 4311063-6 (Version None)
Quarter: 2004Q1

REPORT INFORMATION
  Report Type: 
  Country: None (occurrence: None)
  Receive Date: 20040302
  Receipt Date: 20040217
  Transmission Date: 20041129
  Serious: Yes (Life-Threatening, Hospitalization)
  Sender: FDA-Public Use
  Company Number: GB-JNJFOC-20040206098

PATIENT
  Age: 87 Year
  Sex: Male

DRUGS (4)
  1. REMINYL [Suspect]
     Indication: DEMENTIA
     Dosage: 12 MG, 2 IN 1 DAY, ORAL
     Route: 048
     Dates: start: 20030101, end: 20031201
  2. ACETYLSALYCYLIC ACID (ACETYLSALICYLIC ACID) [Concomitant]
  3. IRBESARTAN (IRBESARTAN) [Concomitant]
  4. CITALOPRAM (CITALOPRAM) [Concomitant]

REACTIONS (2)
  - FALL [None]
  - HEART RATE IRREGULAR [None]
